FAERS Safety Report 26025222 (Version 1)
Quarter: 2025Q4

REPORT INFORMATION
  Report Type: Spontaneous
  Country: GB (occurrence: GB)
  Receive Date: 20251111
  Receipt Date: 20251111
  Transmission Date: 20260117
  Serious: Yes (Hospitalization)
  Sender: ROCHE
  Company Number: GB-002147023-NVSC2025GB170428

PATIENT
  Sex: Female

DRUGS (1)
  1. XOLAIR [Suspect]
     Active Substance: OMALIZUMAB
     Indication: Urticaria
     Route: 058

REACTIONS (4)
  - Urticaria [Unknown]
  - Skin haemorrhage [Unknown]
  - Mental disorder [Unknown]
  - Product dose omission issue [Unknown]
